FAERS Safety Report 24562719 (Version 3)
Quarter: 2025Q3

REPORT INFORMATION
  Report Type: Spontaneous
  Country: AU (occurrence: AU)
  Receive Date: 20241029
  Receipt Date: 20250701
  Transmission Date: 20251021
  Serious: Yes (Other)
  Sender: NOVO NORDISK
  Company Number: AU-NOVOPROD-1303686

PATIENT
  Age: 40 Year
  Sex: Female

DRUGS (2)
  1. OZEMPIC [Interacting]
     Active Substance: SEMAGLUTIDE
     Indication: Weight control
     Dosage: 0.25 MG, QW
     Route: 058
     Dates: start: 20240712, end: 20240912
  2. LEVLEN [Interacting]
     Active Substance: ETHINYL ESTRADIOL\LEVONORGESTREL
     Indication: Contraception
     Route: 048
     Dates: end: 20240912

REACTIONS (5)
  - Unintended pregnancy [Recovered/Resolved]
  - Pregnancy on oral contraceptive [Recovered/Resolved]
  - Retained products of conception [Unknown]
  - Drug interaction [Unknown]
  - Maternal exposure during pregnancy [Recovered/Resolved]

NARRATIVE: CASE EVENT DATE: 20240806
